FAERS Safety Report 7440510-6 (Version None)
Quarter: 2011Q2

REPORT INFORMATION
  Report Type: 
  Country: None (occurrence: None)
  Receive Date: 20110427
  Receipt Date: 20110420
  Transmission Date: 20111010
  Serious: Yes (Hospitalization)
  Sender: FDA-Public Use
  Company Number: A0724618A

PATIENT
  Age: 45 Year
  Sex: Male
  Weight: 120.9 kg

DRUGS (21)
  1. ACTOS [Concomitant]
  2. COREG [Concomitant]
  3. PRAVACHOL [Concomitant]
  4. AVANDIA [Suspect]
     Dosage: 2MG PER DAY
     Route: 048
     Dates: start: 20051201
  5. GLUCOPHAGE [Concomitant]
  6. NEURONTIN [Concomitant]
  7. AVANDAMET [Suspect]
     Route: 048
     Dates: start: 20040601, end: 20041201
  8. WELLBUTRIN [Concomitant]
  9. ADVIL LIQUI-GELS [Concomitant]
  10. DEPAKOTE [Concomitant]
  11. ASPIRIN [Concomitant]
  12. NEURONTIN [Concomitant]
  13. WELLBUTRIN XL [Concomitant]
  14. FLOMAX [Concomitant]
  15. AMARYL [Concomitant]
  16. PLAVIX [Concomitant]
  17. METFORMIN [Concomitant]
     Dates: start: 20030401, end: 20030501
  18. ASPIRIN [Concomitant]
  19. PRAVACHOL [Concomitant]
  20. LEVITRA [Concomitant]
  21. NORVASC [Concomitant]

REACTIONS (6)
  - CARDIAC FAILURE CONGESTIVE [None]
  - CEREBROVASCULAR ACCIDENT [None]
  - CEREBROVASCULAR DISORDER [None]
  - CONDITION AGGRAVATED [None]
  - CARDIAC DISORDER [None]
  - CONVERSION DISORDER [None]
